FAERS Safety Report 13016965 (Version 1)
Quarter: 2016Q4

REPORT INFORMATION
  Report Type: Spontaneous
  Country: US (occurrence: US)
  Receive Date: 20161212
  Receipt Date: 20161212
  Transmission Date: 20170207
  Serious: No
  Sender: FDA-Public Use
  Company Number: US-BAYER-2016-234061

PATIENT
  Age: 42 Year
  Sex: Female
  Weight: 97.52 kg

DRUGS (1)
  1. MIRALAX [Suspect]
     Active Substance: POLYETHYLENE GLYCOL 3350
     Indication: CONSTIPATION
     Dosage: 1 DF, UNK
     Route: 048
     Dates: start: 2015, end: 20161206

REACTIONS (5)
  - Product use issue [Unknown]
  - Abdominal discomfort [Recovering/Resolving]
  - Dysgeusia [Recovering/Resolving]
  - Product odour abnormal [None]
  - Wrong technique in product usage process [None]

NARRATIVE: CASE EVENT DATE: 20161206
